FAERS Safety Report 6904575-X (Version None)
Quarter: 2010Q3

REPORT INFORMATION
  Report Type: 
  Country: None (occurrence: None)
  Receive Date: 20100804
  Receipt Date: 20090616
  Transmission Date: 20110219
  Serious: No
  Sender: FDA-Public Use
  Company Number: US-PFIZER INC-2009196656

PATIENT
  Sex: Female
  Weight: 40.8 kg

DRUGS (1)
  1. LYRICA [Suspect]
     Dosage: 100 MG

REACTIONS (1)
  - OEDEMA PERIPHERAL [None]
